FAERS Safety Report 19775665 (Version 2)
Quarter: 2022Q1

REPORT INFORMATION
  Report Type: Spontaneous
  Country: US (occurrence: US)
  Receive Date: 20210901
  Receipt Date: 20220128
  Transmission Date: 20220423
  Serious: No
  Sender: FDA-Public Use
  Company Number: US-BAYER-2021-203160

PATIENT
  Age: 50 Year
  Sex: Female

DRUGS (1)
  1. MIRENA [Suspect]
     Active Substance: LEVONORGESTREL
     Indication: Contraception
     Dosage: 20?G/DAY
     Route: 015
     Dates: start: 202009, end: 20210201

REACTIONS (2)
  - Heavy menstrual bleeding [Recovering/Resolving]
  - Device expulsion [Recovered/Resolved]

NARRATIVE: CASE EVENT DATE: 20210201
